FAERS Safety Report 18655022 (Version 1)
Quarter: 2020Q4

REPORT INFORMATION
  Report Type: Spontaneous
  Country: US (occurrence: US)
  Receive Date: 20201223
  Receipt Date: 20201223
  Transmission Date: 20210114
  Serious: Yes (Hospitalization)
  Sender: FDA-Public Use
  Company Number: US-PFIZER INC-2020505911

PATIENT
  Age: 26 Month
  Sex: Female
  Weight: 13.15 kg

DRUGS (4)
  1. REMODULIN [Suspect]
     Active Substance: TREPROSTINIL
     Dosage: UNK (0.0988 UG/KG)
     Route: 058
     Dates: start: 20190415
  2. TRACLEER [Concomitant]
     Active Substance: BOSENTAN
     Dosage: UNK
  3. REMODULIN [Suspect]
     Active Substance: TREPROSTINIL
     Indication: PULMONARY ARTERIAL HYPERTENSION
     Dosage: UNK (0.0927 UG/KG)
     Route: 058
     Dates: start: 20190415
  4. REVATIO [Suspect]
     Active Substance: SILDENAFIL CITRATE
     Dosage: 14 MG, 3X/DAY

REACTIONS (4)
  - Blood pressure abnormal [Recovered/Resolved]
  - Infusion site pain [Recovered/Resolved]
  - Infusion site erythema [Recovered/Resolved]
  - Infusion site irritation [Recovered/Resolved]

NARRATIVE: CASE EVENT DATE: 2020
